FAERS Safety Report 5993986-5 (Version None)
Quarter: 2008Q4

REPORT INFORMATION
  Report Type: 
  Country: None (occurrence: None)
  Receive Date: 20081212
  Receipt Date: 20081202
  Transmission Date: 20090506
  Serious: Yes (Other)
  Sender: FDA-Public Use
  Company Number: US-PFIZER INC-2003041382

PATIENT
  Age: 45 Year
  Sex: Male

DRUGS (4)
  1. GEODON [Suspect]
     Dosage: BID
     Route: 048
     Dates: end: 20030901
  2. SERTRALINE HCL [Concomitant]
     Route: 048
  3. LORAZEPAM [Concomitant]
     Route: 048
  4. RANITIDINE HCL [Concomitant]
     Route: 048

REACTIONS (2)
  - CARDIAC ARREST [None]
  - FOOT OPERATION [None]
